FAERS Safety Report 25968157 (Version 1)
Quarter: 2025Q4

REPORT INFORMATION
  Report Type: Spontaneous
  Country: EU (occurrence: EU)
  Receive Date: 20251028
  Receipt Date: 20251028
  Transmission Date: 20260118
  Serious: Yes (Life-Threatening, Other)
  Sender: AUROBINDO
  Company Number: EU-AFSSAPS-ST2025001153

PATIENT
  Age: 15 Year
  Sex: Female
  Weight: 51 kg

DRUGS (1)
  1. VENLAFAXINE [Suspect]
     Active Substance: VENLAFAXINE HYDROCHLORIDE
     Indication: Generalised anxiety disorder
     Dosage: 112.5 MILLIGRAM, ONCE A DAY
     Route: 048
     Dates: start: 20250910, end: 20251006

REACTIONS (2)
  - Subdural haematoma [Recovering/Resolving]
  - Cerebral haematoma [Recovering/Resolving]

NARRATIVE: CASE EVENT DATE: 20251006
